FAERS Safety Report 10090204 (Version 1)
Quarter: 2014Q2

REPORT INFORMATION
  Report Type: Spontaneous
  Country: US (occurrence: US)
  Receive Date: 20140421
  Receipt Date: 20140421
  Transmission Date: 20141212
  Serious: Yes (Hospitalization)
  Sender: FDA-Public Use
  Company Number: US-GLAXOSMITHKLINE-A1070055A

PATIENT
  Sex: Female

DRUGS (1)
  1. VOTRIENT [Suspect]
     Indication: RENAL CANCER
     Dosage: 200MG UNKNOWN
     Route: 065
     Dates: start: 20130404

REACTIONS (6)
  - Pulmonary embolism [Unknown]
  - Hypothyroidism [Unknown]
  - Deep vein thrombosis [Unknown]
  - Hypercalcaemia [Unknown]
  - Metastases to lung [Unknown]
  - Pancreatic carcinoma [Unknown]
